FAERS Safety Report 4802917-2 (Version None)
Quarter: 2005Q4

REPORT INFORMATION
  Report Type: 
  Country: None (occurrence: None)
  Receive Date: 20051017
  Receipt Date: 20051017
  Transmission Date: 20060501
  Serious: Yes (Life-Threatening, Hospitalization, Other)
  Sender: FDA-Public Use
  Company Number: None

PATIENT
  Sex: Female
  Weight: 72.5755 kg

DRUGS (1)
  1. BRETHINE [Suspect]
     Indication: PREMATURE LABOUR
     Dosage: 2.5 MG EVERY 6 HOURS PO
     Route: 048
     Dates: start: 20040709, end: 20040719

REACTIONS (9)
  - ANXIETY [None]
  - CAESAREAN SECTION [None]
  - CARDIAC FAILURE CONGESTIVE [None]
  - CARDIAC VALVE DISEASE [None]
  - DRUG EXPOSURE DURING PREGNANCY [None]
  - DYSPNOEA [None]
  - OFF LABEL USE [None]
  - PANIC ATTACK [None]
  - SWELLING [None]
